FAERS Safety Report 21296832 (Version 1)
Quarter: 2022Q3

REPORT INFORMATION
  Report Type: Spontaneous
  Country: US (occurrence: None)
  Receive Date: 20220902
  Receipt Date: 20220902
  Transmission Date: 20221027
  Serious: Yes (Life-Threatening)
  Sender: FDA-Public Use
  Company Number: None

PATIENT
  Age: 72 Year
  Sex: Male
  Weight: 100 kg

DRUGS (1)
  1. HYDRALAZINE [Suspect]
     Active Substance: HYDRALAZINE HYDROCHLORIDE
     Dosage: FREQUENCY : TWICE A DAY;?
     Route: 048
     Dates: start: 20200710, end: 20220524

REACTIONS (4)
  - IgA nephropathy [None]
  - Antinuclear antibody positive [None]
  - Antineutrophil cytoplasmic antibody positive [None]
  - Histone antibody positive [None]

NARRATIVE: CASE EVENT DATE: 20220728
